FAERS Safety Report 16461643 (Version 1)
Quarter: 2019Q2

REPORT INFORMATION
  Report Type: Spontaneous
  Country: MY (occurrence: MY)
  Receive Date: 20190621
  Receipt Date: 20190621
  Transmission Date: 20190711
  Serious: Yes (Other)
  Sender: FDA-Public Use
  Company Number: MY-009507513-1906MYS007563

PATIENT
  Age: 36 Year
  Sex: Male

DRUGS (1)
  1. AERIUS (DESLORATADINE) [Suspect]
     Active Substance: DESLORATADINE
     Indication: RASH
     Dosage: 5 MILLIGRAM, 1 DAY
     Route: 048

REACTIONS (2)
  - Dysphagia [Recovered/Resolved]
  - Dyspnoea [Recovered/Resolved]
